FAERS Safety Report 5142968-4 (Version None)
Quarter: 2006Q4

REPORT INFORMATION
  Report Type: 
  Country: None (occurrence: None)
  Receive Date: 20061103
  Receipt Date: 20061018
  Transmission Date: 20070319
  Serious: Yes (Hospitalization)
  Sender: FDA-Public Use
  Company Number: US-BAYER-200616084BWH

PATIENT
  Age: 67 Year
  Sex: Female
  Weight: 73 kg

DRUGS (10)
  1. SORAFENIB [Suspect]
     Indication: OVARIAN CANCER METASTATIC
     Dosage: TOTAL DAILY DOSE: 800 MG  UNIT DOSE: 200 MG
     Route: 048
     Dates: start: 20061005, end: 20061014
  2. TOPROL-XL [Concomitant]
     Dosage: TOTAL DAILY DOSE: 25 MG
     Route: 048
  3. ASPIRIN [Concomitant]
     Dosage: TOTAL DAILY DOSE: 81 MG
     Route: 048
  4. LIPITOR [Concomitant]
     Dosage: TOTAL DAILY DOSE: 10 MG
     Route: 048
  5. POTASSIUM CHLORIDE [Concomitant]
     Dosage: TOTAL DAILY DOSE: 40 MG
     Route: 048
  6. COQ10 [Concomitant]
     Dosage: TOTAL DAILY DOSE: 100 MG
     Route: 048
  7. SENNOKOT [Concomitant]
     Route: 048
  8. COLACE [Concomitant]
     Dosage: TOTAL DAILY DOSE: 100 MG
     Route: 048
  9. TRIAMCINOLONE [Concomitant]
  10. HYDROCORTISONE [Concomitant]

REACTIONS (10)
  - DRUG HYPERSENSITIVITY [None]
  - HAEMATOCRIT DECREASED [None]
  - HAEMOGLOBIN DECREASED [None]
  - HYPOCALCAEMIA [None]
  - HYPOKALAEMIA [None]
  - HYPOPHOSPHATAEMIA [None]
  - INFECTION [None]
  - PALMAR-PLANTAR ERYTHRODYSAESTHESIA SYNDROME [None]
  - PYREXIA [None]
  - RASH GENERALISED [None]
